FAERS Safety Report 5213816-9 (Version None)
Quarter: 2007Q1

REPORT INFORMATION
  Report Type: 
  Country: None (occurrence: None)
  Receive Date: 20070119
  Receipt Date: 20070109
  Transmission Date: 20070707
  Serious: Yes (Death, Hospitalization)
  Sender: FDA-Public Use
  Company Number: FR-ABBOTT-07P-056-0355275-00

PATIENT
  Age: 93 Year
  Sex: Female

DRUGS (4)
  1. MONONAXY [Suspect]
     Indication: DRUG USE FOR UNKNOWN INDICATION
     Route: 048
     Dates: start: 20061017, end: 20061020
  2. COLCHIMAX [Interacting]
     Indication: DRUG USE FOR UNKNOWN INDICATION
     Dates: start: 20061017, end: 20061024
  3. LASIX [Concomitant]
     Indication: DRUG USE FOR UNKNOWN INDICATION
  4. POTASSIUM CHLORIDE [Concomitant]
     Indication: DRUG USE FOR UNKNOWN INDICATION

REACTIONS (11)
  - ABDOMINAL DISTENSION [None]
  - ABDOMINAL SYMPTOM [None]
  - DEHYDRATION [None]
  - DIARRHOEA [None]
  - DRUG INTERACTION [None]
  - LEUKOPENIA [None]
  - MUCOUS MEMBRANE DISORDER [None]
  - OVERDOSE [None]
  - RESPIRATORY TRACT CONGESTION [None]
  - SKIN TURGOR DECREASED [None]
  - THROMBOCYTOPENIA [None]
